FAERS Safety Report 4487593-3 (Version None)
Quarter: 2004Q4

REPORT INFORMATION
  Report Type: 
  Country: None (occurrence: None)
  Receive Date: 20041025
  Receipt Date: 20041014
  Transmission Date: 20050328
  Serious: No
  Sender: FDA-Public Use
  Company Number: 2004UW21436

PATIENT
  Age: 50 Year
  Sex: Female

DRUGS (3)
  1. NEXIUM [Suspect]
     Indication: GASTROOESOPHAGEAL REFLUX DISEASE
     Dosage: 40 MG DAILY PO
     Route: 048
  2. LEXAPRO [Suspect]
  3. PREMARIN [Concomitant]

REACTIONS (2)
  - ENCEPHALOPATHY [None]
  - HEPATIC FAILURE [None]
